FAERS Safety Report 23506896 (Version 1)
Quarter: 2024Q1

REPORT INFORMATION
  Report Type: Spontaneous
  Country: US (occurrence: US)
  Receive Date: 20240209
  Receipt Date: 20240209
  Transmission Date: 20240410
  Serious: No
  Sender: FDA-Public Use
  Company Number: US-ABBVIE-5619583

PATIENT
  Sex: Female

DRUGS (1)
  1. MAVYRET [Suspect]
     Active Substance: GLECAPREVIR\PIBRENTASVIR
     Indication: Product used for unknown indication
     Dosage: TIME INTERVAL: 0.33333333 DAYS: FORM STRENGTH: 100 MILLIGRAM
     Route: 048
     Dates: start: 20231229

REACTIONS (7)
  - Skin hypertrophy [Unknown]
  - Skin discolouration [Unknown]
  - Dysphagia [Unknown]
  - Palpitations [Unknown]
  - Fall [Unknown]
  - Blood pressure increased [Unknown]
  - Peripheral coldness [Unknown]
